FAERS Safety Report 25363452 (Version 1)
Quarter: 2025Q2

REPORT INFORMATION
  Report Type: Spontaneous
  Country: US (occurrence: None)
  Receive Date: 20250526
  Receipt Date: 20250526
  Transmission Date: 20250717
  Serious: Yes (Hospitalization)
  Sender: FDA-CTU
  Company Number: None

PATIENT
  Age: 39 Year
  Sex: Male

DRUGS (3)
  1. XOLAIR [Suspect]
     Active Substance: OMALIZUMAB
  2. PRAVASTATIN [Concomitant]
     Active Substance: PRAVASTATIN
  3. OTC medicine for sinus [Concomitant]

REACTIONS (2)
  - Pneumonia [None]
  - Pericarditis [None]

NARRATIVE: CASE EVENT DATE: 20250525
